FAERS Safety Report 8474243-4 (Version None)
Quarter: 2012Q2

REPORT INFORMATION
  Report Type: 
  Country: None (occurrence: None)
  Receive Date: 20120628
  Receipt Date: 20120620
  Transmission Date: 20120825
  Serious: Yes (Hospitalization)
  Sender: FDA-Public Use
  Company Number: US-BAYER-2011-052101

PATIENT
  Age: 35 Year
  Sex: Female
  Weight: 56.689 kg

DRUGS (3)
  1. YASMIN [Suspect]
     Indication: CONTRACEPTION
     Dosage: UNK
     Dates: start: 20070101, end: 20080601
  2. DEPO-PROVERA [Concomitant]
  3. YAZ [Suspect]
     Indication: CONTRACEPTION
     Dosage: UNK
     Dates: start: 20070101, end: 20080601

REACTIONS (5)
  - CHOLECYSTITIS CHRONIC [None]
  - EMOTIONAL DISORDER [None]
  - PAIN [None]
  - INJURY [None]
  - GALLBLADDER NON-FUNCTIONING [None]
